FAERS Safety Report 12201742 (Version 1)
Quarter: 2016Q1

REPORT INFORMATION
  Report Type: Spontaneous
  Country: US (occurrence: US)
  Receive Date: 20160322
  Receipt Date: 20160322
  Transmission Date: 20160526
  Serious: No
  Sender: FDA-Public Use
  Company Number: US-SA-2016SA022033

PATIENT
  Age: 46 Year
  Sex: Female

DRUGS (1)
  1. NASACORT ALLERGY 24HR [Suspect]
     Active Substance: TRIAMCINOLONE ACETONIDE
     Indication: MULTIPLE ALLERGIES
     Dosage: DOSE AND DAILY DOSAGE: 55 MCG/ACT (1 SPRAY IN EACH NOSTRIL TWICE A DAY)
     Route: 045
     Dates: start: 20160201, end: 20160201

REACTIONS (2)
  - Lethargy [Recovered/Resolved]
  - Incorrect dose administered [Unknown]
